FAERS Safety Report 6845533-3 (Version None)
Quarter: 2010Q3

REPORT INFORMATION
  Report Type: 
  Country: None (occurrence: None)
  Receive Date: 20100713
  Receipt Date: 20100629
  Transmission Date: 20110219
  Serious: Yes (Hospitalization)
  Sender: FDA-Public Use
  Company Number: A-US2010-37016

PATIENT
  Age: 53 Year
  Sex: Female

DRUGS (3)
  1. TRACLEER [Suspect]
     Indication: PULMONARY ARTERIAL HYPERTENSION
     Dosage: ORAL
     Route: 048
     Dates: start: 20100401
  2. REVATIO [Concomitant]
  3. PARENTERAL (CALCIUM CHLORIDE HEXAHYDRATE, POTASSIUM CHLORIDE, SODIUM A [Concomitant]

REACTIONS (1)
  - DEVICE RELATED INFECTION [None]
